FAERS Safety Report 11773343 (Version 3)
Quarter: 2016Q2

REPORT INFORMATION
  Report Type: Spontaneous
  Country: US (occurrence: US)
  Receive Date: 20151124
  Receipt Date: 20160512
  Transmission Date: 20160815
  Serious: Yes (Other)
  Sender: FDA-Public Use
  Company Number: US-MDT-ADR-2015-02222

PATIENT
  Age: 39 Year
  Sex: Female

DRUGS (1)
  1. BACLOFEN. [Suspect]
     Active Substance: BACLOFEN
     Route: 037

REACTIONS (3)
  - Urinary tract infection [Unknown]
  - Muscle spasticity [Unknown]
  - No therapeutic response [Unknown]

NARRATIVE: CASE EVENT DATE: 20151118
